FAERS Safety Report 25307999 (Version 1)
Quarter: 2025Q2

REPORT INFORMATION
  Report Type: Spontaneous
  Country: US (occurrence: US)
  Receive Date: 20250513
  Receipt Date: 20250513
  Transmission Date: 20250717
  Serious: No
  Sender: GALPHARM INTERNATIONAL
  Company Number: US-PERRIGO-25US002962

PATIENT
  Age: 36 Year
  Weight: 54.422 kg

DRUGS (1)
  1. MICONAZOLE 3 COMBINATION PACK [Suspect]
     Active Substance: MICONAZOLE NITRATE
     Indication: Accidental exposure to product
     Route: 048
     Dates: start: 20250303, end: 20250303

REACTIONS (2)
  - Accidental exposure to product [Recovered/Resolved]
  - Wrong product administered [Recovered/Resolved]

NARRATIVE: CASE EVENT DATE: 20250303
